FAERS Safety Report 4605085-5 (Version None)
Quarter: 2005Q1

REPORT INFORMATION
  Report Type: 
  Country: None (occurrence: None)
  Receive Date: 20050217
  Receipt Date: 20041129
  Transmission Date: 20050727
  Serious: Yes (Other)
  Sender: FDA-Public Use
  Company Number: S04-USA-07661-01

PATIENT

DRUGS (2)
  1. NAMENDA [Suspect]
     Dosage: 10 MG QD; PO
     Route: 048
     Dates: start: 20041101
  2. NAMENDA [Suspect]
     Dosage: 5 MG QD; PO
     Route: 048
     Dates: start: 20041101, end: 20041101

REACTIONS (1)
  - CONVULSION [None]
